FAERS Safety Report 4541649-5 (Version None)
Quarter: 2004Q4

REPORT INFORMATION
  Report Type: 
  Country: None (occurrence: None)
  Receive Date: 20041227
  Receipt Date: 20041220
  Transmission Date: 20050328
  Serious: Yes (Death, Hospitalization)
  Sender: FDA-Public Use
  Company Number: 2003-12-0933

PATIENT
  Age: 54 Year
  Sex: Male
  Weight: 80 kg

DRUGS (6)
  1. PEG-INTRON [Suspect]
     Indication: HEPATITIS C
     Dosage: 120 MCG QWK SUBCUTANEOUS
     Route: 058
     Dates: start: 20030912, end: 20030926
  2. RIBAVIRIN [Suspect]
     Indication: HEPATITIS C
     Dosage: 1000 MG QD ORAL
     Route: 048
     Dates: start: 20030912, end: 20030926
  3. HUMULIN N INJECTABLE 30 U [Concomitant]
  4. HUMULIN N INJECTABLE [Concomitant]
  5. HUMALOG [Concomitant]
  6. ANTIHYPERTENSIVE AGENT (NOS) [Concomitant]

REACTIONS (2)
  - HAEMATEMESIS [None]
  - HYPOXIC ENCEPHALOPATHY [None]
